FAERS Safety Report 25122772 (Version 1)
Quarter: 2025Q1

REPORT INFORMATION
  Report Type: Spontaneous
  Country: US (occurrence: US)
  Receive Date: 20250326
  Receipt Date: 20250326
  Transmission Date: 20250409
  Serious: No
  Sender: ALCON
  Company Number: US-ALCON LABORATORIES-ALC2025US000708

PATIENT
  Age: 65 Year
  Sex: Female

DRUGS (3)
  1. PATADAY ONCE DAILY RELIEF [Suspect]
     Active Substance: OLOPATADINE HYDROCHLORIDE
     Indication: Eye allergy
     Route: 047
     Dates: start: 20241124
  2. PATADAY ONCE DAILY RELIEF [Suspect]
     Active Substance: OLOPATADINE HYDROCHLORIDE
     Indication: Dry eye
  3. PATADAY ONCE DAILY RELIEF [Suspect]
     Active Substance: OLOPATADINE HYDROCHLORIDE
     Indication: Eye pruritus

REACTIONS (5)
  - Product odour abnormal [Unknown]
  - Suspected product contamination [Unknown]
  - Drug ineffective [Unknown]
  - Eye pruritus [Recovering/Resolving]
  - Eyelid margin crusting [Recovering/Resolving]

NARRATIVE: CASE EVENT DATE: 20241124
